FAERS Safety Report 4470593-7 (Version None)
Quarter: 2004Q4

REPORT INFORMATION
  Report Type: 
  Country: None (occurrence: None)
  Receive Date: 20041005
  Receipt Date: 20040913
  Transmission Date: 20050328
  Serious: Yes (Hospitalization, Other)
  Sender: FDA-Public Use
  Company Number: ZANA001346

PATIENT
  Age: 60 Year
  Sex: Female

DRUGS (4)
  1. SIRDALUD (TIZANIDINE HYDROCHLORIDE) [Suspect]
     Indication: BONE PAIN
     Dosage: 6 MG DAILY ORAL
     Route: 048
     Dates: start: 20040807, end: 20040809
  2. VOLTAREN [Suspect]
     Indication: BONE PAIN
     Dates: start: 20040807, end: 20040809
  3. VIOXX [Suspect]
     Indication: BONE PAIN
     Dates: start: 20040807, end: 20040809
  4. HERBAL EXTRACRS NOS (HERBAL EXTRACTS NOS) [Suspect]

REACTIONS (18)
  - ALANINE AMINOTRANSFERASE INCREASED [None]
  - ASPARTATE AMINOTRANSFERASE INCREASED [None]
  - BLOOD ALKALINE PHOSPHATASE INCREASED [None]
  - BRADYCARDIA [None]
  - CHEST DISCOMFORT [None]
  - DIARRHOEA [None]
  - DRUG INTERACTION [None]
  - DRUG LEVEL INCREASED [None]
  - DYSPNOEA [None]
  - FIBRIN D DIMER INCREASED [None]
  - GAMMA-GLUTAMYLTRANSFERASE INCREASED [None]
  - HAEMANGIOMA [None]
  - HEPATIC ENZYME INCREASED [None]
  - HYPERHIDROSIS [None]
  - HYPOPERFUSION [None]
  - PLEURAL EFFUSION [None]
  - PULMONARY HYPERTENSION [None]
  - VOMITING [None]
